FAERS Safety Report 7553708-3 (Version None)
Quarter: 2011Q2

REPORT INFORMATION
  Report Type: 
  Country: None (occurrence: None)
  Receive Date: 20110617
  Receipt Date: 20110607
  Transmission Date: 20111010
  Serious: Yes (Hospitalization)
  Sender: FDA-Public Use
  Company Number: IT-NOVOPROD-329597

PATIENT
  Sex: Female

DRUGS (8)
  1. LASIX [Concomitant]
  2. ALLOPURINOL [Concomitant]
  3. LERCADIP                           /01366401/ [Concomitant]
  4. LIPONORM                           /00001301/ [Concomitant]
  5. ENAPREN [Concomitant]
  6. REPAGLINIDE [Suspect]
     Route: 048
  7. REPAGLINIDE [Suspect]
     Indication: DIABETES MELLITUS
     Dosage: 2 TAB, QD
     Route: 048
     Dates: start: 20000721
  8. ASPIRIN [Concomitant]

REACTIONS (1)
  - HYPOGLYCAEMIC COMA [None]
